FAERS Safety Report 25927827 (Version 2)
Quarter: 2025Q4

REPORT INFORMATION
  Report Type: Spontaneous
  Country: JP (occurrence: JP)
  Receive Date: 20251016
  Receipt Date: 20251129
  Transmission Date: 20260117
  Serious: No
  Sender: AMGEN
  Company Number: JP-KYOWAKIRIN-2025KK019483

PATIENT

DRUGS (2)
  1. DARBEPOETIN ALFA [Suspect]
     Active Substance: DARBEPOETIN ALFA
     Indication: Product used for unknown indication
     Dosage: 180 UG
     Route: 065
  2. DARBEPOETIN ALFA [Suspect]
     Active Substance: DARBEPOETIN ALFA
     Dosage: 120 UG
     Route: 065

REACTIONS (1)
  - No adverse event [Unknown]
